FAERS Safety Report 10433764 (Version 2)
Quarter: 2014Q3

REPORT INFORMATION
  Report Type: Report from Study
  Country: JP (occurrence: JP)
  Receive Date: 20140905
  Receipt Date: 20140916
  Transmission Date: 20150326
  Serious: Yes (Death, Life-Threatening)
  Sender: FDA-Public Use
  Company Number: JP-PFIZER INC-2014243138

PATIENT
  Age: 58 Year
  Sex: Female
  Weight: 38.2 kg

DRUGS (5)
  1. AXITINIB [Suspect]
     Active Substance: AXITINIB
     Dosage: 6 MG, 2X/DAY AFTER MEAL
     Route: 048
     Dates: start: 20140717, end: 20140720
  2. AMLODIPINE [Concomitant]
     Active Substance: AMLODIPINE BESYLATE
     Dosage: 5 MG, 1X/DAY
     Route: 048
     Dates: start: 20140310, end: 20140715
  3. DIOVAN [Concomitant]
     Active Substance: VALSARTAN
     Dosage: 80 MG, 1X/DAY
     Route: 048
     Dates: start: 20140227, end: 20140715
  4. AXITINIB [Suspect]
     Active Substance: AXITINIB
     Indication: RENAL CELL CARCINOMA
     Dosage: 5 MG, 2X/DAY AFTER MEAL
     Route: 048
     Dates: start: 20140224, end: 20140716
  5. THYRADIN S [Concomitant]
     Active Substance: LEVOTHYROXINE SODIUM
     Dosage: 50 UG, 1X/DAY
     Route: 048
     Dates: start: 20140507, end: 20140806

REACTIONS (3)
  - Disease progression [Fatal]
  - Renal cell carcinoma [Fatal]
  - Platelet count decreased [Not Recovered/Not Resolved]

NARRATIVE: CASE EVENT DATE: 20140407
